FAERS Safety Report 15157424 (Version 3)
Quarter: 2018Q4

REPORT INFORMATION
  Report Type: Report from Study
  Country: US (occurrence: US)
  Receive Date: 20180718
  Receipt Date: 20181008
  Transmission Date: 20190204
  Serious: Yes (Death, Other)
  Sender: FDA-Public Use
  Company Number: US-ROCHE-2117112

PATIENT
  Age: 80 Year
  Sex: Male

DRUGS (7)
  1. COBIMETINIB. [Suspect]
     Active Substance: COBIMETINIB
     Indication: ANAPLASTIC THYROID CANCER
     Dosage: DAILY DOSE 60 MG
     Route: 048
  2. ATEZOLIZUMAB. [Suspect]
     Active Substance: ATEZOLIZUMAB
     Indication: ANAPLASTIC THYROID CANCER
     Dosage: ON DAY 1 AND 15 IN A 28 DAY CYCLE
     Route: 042
  3. TRAMADOL. [Concomitant]
     Active Substance: TRAMADOL
  4. DABRAFENIB [Concomitant]
     Active Substance: DABRAFENIB
  5. SYNTHROID [Concomitant]
     Active Substance: LEVOTHYROXINE SODIUM
  6. VEMURAFENIB. [Suspect]
     Active Substance: VEMURAFENIB
     Indication: ANAPLASTIC THYROID CANCER
     Route: 048
  7. TRAMETINIB [Concomitant]
     Active Substance: TRAMETINIB

REACTIONS (4)
  - Rash maculo-papular [Recovering/Resolving]
  - Death [Fatal]
  - Retinopathy [Recovering/Resolving]
  - Pancreatitis [Not Recovered/Not Resolved]

NARRATIVE: CASE EVENT DATE: 20180414
